FAERS Safety Report 20850104 (Version 1)
Quarter: 2022Q2

REPORT INFORMATION
  Report Type: Other
  Country: CN (occurrence: CN)
  Receive Date: 20220519
  Receipt Date: 20220519
  Transmission Date: 20220720
  Serious: Yes (Death)
  Sender: FDA-Public Use
  Company Number: CN-BoehringerIngelheim-2022-BI-170186

PATIENT

DRUGS (1)
  1. ALTEPLASE [Suspect]
     Active Substance: ALTEPLASE
     Indication: Ischaemic stroke
     Dosage: (0.9 MG/KG, MAXIMUM 90 MG; 10% BOLUS FOLLOWED BY A 60-MIN INFUSION)
     Route: 042

REACTIONS (1)
  - Brain herniation [Fatal]
